FAERS Safety Report 17889878 (Version 1)
Quarter: 2020Q2

REPORT INFORMATION
  Report Type: Spontaneous
  Country: SE (occurrence: SE)
  Receive Date: 20200612
  Receipt Date: 20200612
  Transmission Date: 20200714
  Serious: Yes (Other)
  Sender: FDA-Public Use
  Company Number: SE-TEVA-2020-SE-1247496

PATIENT
  Age: 84 Year
  Sex: Female

DRUGS (6)
  1. LERKANIDPIN [Concomitant]
     Dates: start: 20170822
  2. DIGOXIN. [Concomitant]
     Active Substance: DIGOXIN
     Dates: start: 20170822
  3. RIVASTIGMINE. [Suspect]
     Active Substance: RIVASTIGMINE
     Indication: DEMENTIA
     Dosage: 4.6 MILLIGRAM DAILY;
     Dates: start: 20200204, end: 20200302
  4. MADOPARK [Concomitant]
     Active Substance: BENSERAZIDE HYDROCHLORIDE\LEVODOPA
     Dates: start: 20200116
  5. SALURES [Concomitant]
     Active Substance: BENDROFLUMETHIAZIDE
     Dates: start: 20170822
  6. SIMVASTATIN. [Concomitant]
     Active Substance: SIMVASTATIN
     Dates: start: 20181206

REACTIONS (2)
  - Fall [Recovered/Resolved]
  - Balance disorder [Recovered/Resolved]
